FAERS Safety Report 7602679-X (Version None)
Quarter: 2011Q3

REPORT INFORMATION
  Report Type: 
  Country: None (occurrence: None)
  Receive Date: 20110701
  Receipt Date: 20091118
  Transmission Date: 20111222
  Serious: Yes (Other)
  Sender: FDA-Public Use
  Company Number: SIM_00026_2011

PATIENT
  Sex: Female

DRUGS (2)
  1. PINK EYE RELIEF (HOMEOPATHIC) [Suspect]
     Indication: CONJUNCTIVITIS INFECTIVE
     Dosage: (4 GTT BID OPHTHALMIC)
     Route: 047
     Dates: start: 20091113, end: 20091113
  2. PINK EYE RELIEF (HOMEOPATHIC) [Suspect]
     Indication: EYE ALLERGY
     Dosage: (4 GTT BID OPHTHALMIC)
     Route: 047
     Dates: start: 20091113, end: 20091113

REACTIONS (1)
  - DRUG HYPERSENSITIVITY [None]
